FAERS Safety Report 4734141-6 (Version None)
Quarter: 2005Q3

REPORT INFORMATION
  Report Type: 
  Country: None (occurrence: None)
  Receive Date: 20050721
  Receipt Date: 20050502
  Transmission Date: 20060218
  Serious: No
  Sender: FDA-Public Use
  Company Number: 2005SP000496

PATIENT
  Age: 61 Year
  Sex: Male
  Weight: 81.6475 kg

DRUGS (3)
  1. LUNESTA [Suspect]
     Dosage: 2 MG;HS;ORAL; 3 MG;1X; ORAL
     Route: 048
     Dates: start: 20050401
  2. LUNESTA [Suspect]
     Dosage: 2 MG;HS;ORAL; 3 MG;1X; ORAL
     Route: 048
     Dates: start: 20050420
  3. DALMANE [Concomitant]

REACTIONS (3)
  - DRUG INEFFECTIVE [None]
  - FLUSHING [None]
  - MIDDLE INSOMNIA [None]
